FAERS Safety Report 6829700-0 (Version None)
Quarter: 2010Q3

REPORT INFORMATION
  Report Type: 
  Country: None (occurrence: None)
  Receive Date: 20100709
  Receipt Date: 20070525
  Transmission Date: 20110219
  Serious: No
  Sender: FDA-Public Use
  Company Number: US-PFIZER INC-2007014917

PATIENT
  Sex: Female
  Weight: 67.13 kg

DRUGS (15)
  1. CHANTIX [Suspect]
     Indication: SMOKING CESSATION THERAPY
     Dates: start: 20070222, end: 20070228
  2. CAFFEINE [Suspect]
  3. THORAZINE [Concomitant]
  4. LORAZEPAM [Concomitant]
  5. HYDROCODONE BITARTRATE [Concomitant]
  6. DEMEROL [Concomitant]
  7. NORVASC [Concomitant]
  8. NITROGLYCERIN [Concomitant]
     Indication: ANGINA PECTORIS
  9. PROAIR HFA [Concomitant]
     Route: 055
  10. ALL OTHER THERAPEUTIC PRODUCTS [Concomitant]
  11. PROMETHAZINE [Concomitant]
     Indication: NAUSEA
  12. METFORMIN HCL [Concomitant]
  13. PROTONIX [Concomitant]
  14. SULFAMETHOXAZOLE AND TRIMETHOPRIM [Concomitant]
  15. ALL OTHER THERAPEUTIC PRODUCTS [Concomitant]
     Indication: BIPOLAR DISORDER

REACTIONS (6)
  - ABDOMINAL DISCOMFORT [None]
  - DRUG INEFFECTIVE [None]
  - DYSGEUSIA [None]
  - DYSPEPSIA [None]
  - NAUSEA [None]
  - TREMOR [None]
